FAERS Safety Report 4412986-X (Version None)
Quarter: 2004Q3

REPORT INFORMATION
  Report Type: 
  Country: None (occurrence: None)
  Receive Date: 20040802
  Receipt Date: 20040224
  Transmission Date: 20050211
  Serious: No
  Sender: FDA-Public Use
  Company Number: US-GLAXOSMITHKLINE-A0499625A

PATIENT
  Age: 5 Month
  Sex: Male
  Weight: 7.7 kg

DRUGS (1)
  1. ZANTAC [Suspect]
     Dosage: .6CC THREE TIMES PER DAY
     Route: 048
     Dates: start: 20040201

REACTIONS (2)
  - DIARRHOEA [None]
  - DRUG INEFFECTIVE [None]
